FAERS Safety Report 7570370-4 (Version None)
Quarter: 2011Q2

REPORT INFORMATION
  Report Type: 
  Country: None (occurrence: None)
  Receive Date: 20110624
  Receipt Date: 20110615
  Transmission Date: 20111010
  Serious: Yes (Other)
  Sender: FDA-Public Use
  Company Number: CH-SANOFI-AVENTIS-2011SA038026

PATIENT
  Age: 77 Year
  Sex: Male
  Weight: 73 kg

DRUGS (7)
  1. SEREVENT [Concomitant]
     Indication: ASTHMA
     Route: 007
     Dates: start: 20000101
  2. ASPIRIN [Concomitant]
     Indication: ESSENTIAL HYPERTENSION
     Route: 048
     Dates: start: 20000101
  3. ROSUVASTATIN CALCIUM [Concomitant]
     Route: 048
     Dates: start: 20000101
  4. MULTAQ [Suspect]
     Indication: ATRIAL FLUTTER
     Route: 048
     Dates: start: 20100801
  5. CARVEDILOL [Concomitant]
     Indication: ESSENTIAL HYPERTENSION
     Route: 048
     Dates: start: 20000101
  6. MULTAQ [Suspect]
     Indication: ATRIAL FIBRILLATION
     Route: 048
     Dates: start: 20100801
  7. PULMICORT [Concomitant]
     Indication: ASTHMA
     Route: 007
     Dates: start: 20000101

REACTIONS (3)
  - FATIGUE [None]
  - HYPOTHYROIDISM [None]
  - INTENTIONAL DRUG MISUSE [None]
